FAERS Safety Report 21975592 (Version 1)
Quarter: 2023Q1

REPORT INFORMATION
  Report Type: Spontaneous
  Country: US (occurrence: US)
  Receive Date: 20230210
  Receipt Date: 20230210
  Transmission Date: 20230417
  Serious: No
  Sender: FDA-Public Use
  Company Number: US-ABBVIE-4296819

PATIENT
  Age: 21 Year
  Sex: Male
  Weight: 72.574 kg

DRUGS (2)
  1. SKYRIZI [Suspect]
     Active Substance: RISANKIZUMAB-RZAA
     Indication: Psoriasis
     Route: 058
     Dates: start: 20220629
  2. SKYRIZI [Suspect]
     Active Substance: RISANKIZUMAB-RZAA

REACTIONS (2)
  - Blood prolactin increased [Not Recovered/Not Resolved]
  - Blood luteinising hormone increased [Not Recovered/Not Resolved]

NARRATIVE: CASE EVENT DATE: 20230106
